FAERS Safety Report 25763510 (Version 1)
Quarter: 2025Q3

REPORT INFORMATION
  Report Type: Report from Study
  Country: CN (occurrence: CN)
  Receive Date: 20250905
  Receipt Date: 20250905
  Transmission Date: 20251020
  Serious: Yes (Death)
  Sender: ROCHE
  Company Number: CN-ROCHE-10000380811

PATIENT
  Age: 72 Year
  Sex: Male

DRUGS (2)
  1. ATEZOLIZUMAB [Suspect]
     Active Substance: ATEZOLIZUMAB
     Indication: Hepatic cancer
     Dosage: STRENGTH 1200MG/20ML
     Route: 042
     Dates: start: 20240723, end: 20250215
  2. BEVACIZUMAB [Suspect]
     Active Substance: BEVACIZUMAB
     Indication: Hepatic cancer
     Dosage: STRENGTH 100MG/VIAL
     Route: 042
     Dates: start: 20240723, end: 20250225

REACTIONS (1)
  - Death [Fatal]
